FAERS Safety Report 4355823-4 (Version None)
Quarter: 2004Q2

REPORT INFORMATION
  Report Type: 
  Country: None (occurrence: None)
  Receive Date: 20040505
  Receipt Date: 20040423
  Transmission Date: 20050107
  Serious: Yes (Hospitalization, Other)
  Sender: FDA-Public Use
  Company Number: 2004027834

PATIENT
  Age: 53 Year
  Sex: Female
  Weight: 96.5 kg

DRUGS (5)
  1. NEURONTIN [Suspect]
     Indication: CONVULSION
     Dosage: 2400 (TID) ORAL
     Route: 048
  2. TOLTERODINE TARTRATE [Concomitant]
  3. LAMOTRIGINE [Concomitant]
  4. PANTOPRAZOLE [Concomitant]
  5. AMITRIPTYLINE HYDROCHLORIDE [Concomitant]

REACTIONS (5)
  - COUGH [None]
  - DRUG LEVEL INCREASED [None]
  - FOREIGN BODY ASPIRATION [None]
  - PNEUMONIA ASPIRATION [None]
  - UROSEPSIS [None]
